FAERS Safety Report 17153351 (Version 1)
Quarter: 2019Q4

REPORT INFORMATION
  Report Type: Spontaneous
  Country: US (occurrence: US)
  Receive Date: 20191213
  Receipt Date: 20191213
  Transmission Date: 20200122
  Serious: No
  Sender: FDA-Public Use
  Company Number: NVSC2019US015963

PATIENT
  Age: 66 Year
  Sex: Male

DRUGS (2)
  1. TASIGNA [Suspect]
     Active Substance: NILOTINIB
     Indication: PHILADELPHIA CHROMOSOME POSITIVE
  2. TASIGNA [Suspect]
     Active Substance: NILOTINIB
     Indication: CHRONIC MYELOID LEUKAEMIA
     Dosage: 2 DF, BID (TAKE 2 CAPSULES 2 TIMES PER DAY, TAKE WHOLE WITH WATER ON AN EMPTY STOMACH, 1 HOUR BEFORE
     Route: 048
     Dates: start: 201411

REACTIONS (3)
  - Dyspnoea [Unknown]
  - Dyspnoea [Recovered/Resolved with Sequelae]
  - Medication error [Unknown]
